FAERS Safety Report 4522855-2 (Version None)
Quarter: 2004Q4

REPORT INFORMATION
  Report Type: 
  Country: None (occurrence: None)
  Receive Date: 20041209
  Receipt Date: 20041203
  Transmission Date: 20050328
  Serious: Yes (Life-Threatening, Hospitalization, Disabling)
  Sender: FDA-Public Use
  Company Number: US-MERCK-0412USA00555

PATIENT
  Age: 43 Year
  Sex: Male

DRUGS (3)
  1. VIOXX [Suspect]
     Indication: KNEE OPERATION
     Route: 048
     Dates: start: 19990101, end: 20040930
  2. VASOTEC [Concomitant]
     Route: 065
  3. GLYBURIDE [Concomitant]
     Route: 065

REACTIONS (2)
  - OEDEMA PERIPHERAL [None]
  - THROMBOSIS [None]
